FAERS Safety Report 18348744 (Version 1)
Quarter: 2020Q4

REPORT INFORMATION
  Report Type: Spontaneous
  Country: US (occurrence: US)
  Receive Date: 20201006
  Receipt Date: 20201006
  Transmission Date: 20210114
  Serious: No
  Sender: FDA-Public Use
  Company Number: US-SA-2020SA271769

PATIENT

DRUGS (1)
  1. DUPIXENT [Suspect]
     Active Substance: DUPILUMAB
     Indication: DERMATITIS ATOPIC
     Dosage: UNK UNK, QOW
     Route: 058
     Dates: start: 20190715

REACTIONS (5)
  - Skin sensitisation [Unknown]
  - Therapeutic response delayed [Recovering/Resolving]
  - Dermatitis atopic [Recovering/Resolving]
  - Injection site mass [Unknown]
  - Pruritus [Recovering/Resolving]
